FAERS Safety Report 9275473 (Version 1)
Quarter: 2013Q2

REPORT INFORMATION
  Report Type: Spontaneous
  Country: US (occurrence: US)
  Receive Date: 20130507
  Receipt Date: 20130507
  Transmission Date: 20140414
  Serious: No
  Sender: FDA-Public Use
  Company Number: US-PFIZER INC-2013136770

PATIENT
  Age: 82 Year
  Sex: Female
  Weight: 60.77 kg

DRUGS (1)
  1. NORVASC [Suspect]
     Indication: HYPERTENSION
     Dosage: 10 MG DAILY

REACTIONS (2)
  - Blood pressure inadequately controlled [Unknown]
  - Ear discomfort [Unknown]
